FAERS Safety Report 6664378-0 (Version None)
Quarter: 2010Q2

REPORT INFORMATION
  Report Type: 
  Country: None (occurrence: None)
  Receive Date: 20100401
  Receipt Date: 20100326
  Transmission Date: 20101027
  Serious: Yes (Other)
  Sender: FDA-Public Use
  Company Number: GXKR2010GB03612

PATIENT
  Age: 5 Year
  Sex: Female

DRUGS (1)
  1. METHOTREXATE [Suspect]
     Dosage: 7.5 MG, UNK
     Route: 048
     Dates: start: 20060714, end: 20090401

REACTIONS (1)
  - ARTHRITIS [None]
